FAERS Safety Report 16251197 (Version 1)
Quarter: 2019Q2

REPORT INFORMATION
  Report Type: Spontaneous
  Country: US (occurrence: US)
  Receive Date: 20190426
  Receipt Date: 20190426
  Transmission Date: 20190711
  Serious: Yes (Hospitalization)
  Sender: FDA-Public Use
  Company Number: None

PATIENT
  Age: 10 Year
  Sex: Female

DRUGS (3)
  1. OMEPRAZOLE. [Concomitant]
     Active Substance: OMEPRAZOLE
  2. GUANFACINE. [Concomitant]
     Active Substance: GUANFACINE
  3. SILDENAFIL TAB [Suspect]
     Active Substance: SILDENAFIL
     Indication: PORTAL HYPERTENSION
     Route: 048

REACTIONS (1)
  - Oxygen saturation abnormal [None]

NARRATIVE: CASE EVENT DATE: 20190410
